FAERS Safety Report 10533486 (Version 1)
Quarter: 2014Q4

REPORT INFORMATION
  Report Type: Spontaneous
  Country: US (occurrence: None)
  Receive Date: 20141021
  Receipt Date: 20141021
  Transmission Date: 20150529
  Serious: No
  Sender: FDA-Public Use
  Company Number: None

PATIENT
  Age: 27 Year
  Sex: Male
  Weight: 81.65 kg

DRUGS (1)
  1. CIPROFLOXACIN. [Suspect]
     Active Substance: CIPROFLOXACIN
     Indication: PARONYCHIA
     Dosage: 2 PILL TWICE DAILY TAKEN BY MOUTH
     Route: 048
     Dates: start: 20141002, end: 20141012

REACTIONS (5)
  - Chest pain [None]
  - Anxiety [None]
  - Back pain [None]
  - Headache [None]
  - Activities of daily living impaired [None]

NARRATIVE: CASE EVENT DATE: 20141020
